FAERS Safety Report 4368510-3 (Version None)
Quarter: 2004Q2

REPORT INFORMATION
  Report Type: 
  Country: None (occurrence: None)
  Receive Date: 20040602
  Receipt Date: 20040122
  Transmission Date: 20050107
  Serious: No
  Sender: FDA-Public Use
  Company Number: US-GLAXOSMITHKLINE-A0494691A

PATIENT
  Age: 6 Year
  Sex: Male

DRUGS (1)
  1. AUGMENTIN ES-600 [Suspect]
     Dosage: 2TSP TWICE PER DAY
     Route: 048
     Dates: start: 20040119

REACTIONS (2)
  - MUSCLE CRAMP [None]
  - PAIN IN EXTREMITY [None]
